FAERS Safety Report 8167420-3 (Version None)
Quarter: 2012Q1

REPORT INFORMATION
  Report Type: 
  Country: None (occurrence: None)
  Receive Date: 20120103
  Receipt Date: 20111009
  Transmission Date: 20120608
  Serious: No
  Sender: FDA-Public Use
  Company Number: AE-2011-002176

PATIENT
  Age: 47 Year
  Sex: Male
  Weight: 84.369 kg

DRUGS (3)
  1. PEGINTERFERON ALFA-2B [Concomitant]
  2. INCIVEK [Suspect]
     Dosage: 2250 MG (750 MG,  IN 1 D), ORAL
     Route: 048
     Dates: start: 20110803
  3. RIBAVIRIN [Concomitant]

REACTIONS (4)
  - DYSPNOEA [None]
  - GAIT DISTURBANCE [None]
  - DIZZINESS [None]
  - HYPOAESTHESIA [None]
